FAERS Safety Report 5529688-9 (Version None)
Quarter: 2007Q4

REPORT INFORMATION
  Report Type: 
  Country: None (occurrence: None)
  Receive Date: 20071129
  Receipt Date: 20071115
  Transmission Date: 20080405
  Serious: Yes (Hospitalization)
  Sender: FDA-Public Use
  Company Number: DE-GENENTECH-251953

PATIENT
  Sex: Male
  Weight: 82 kg

DRUGS (4)
  1. BEVACIZUMAB [Suspect]
     Indication: COLON CANCER
     Dosage: 400 MG, QD
     Route: 042
     Dates: start: 20070920, end: 20071025
  2. IRINOTECAN HCL [Suspect]
     Indication: COLON CANCER
     Dosage: 80 MG, QD
     Route: 042
     Dates: start: 20070830, end: 20071025
  3. FLUOROURACIL [Suspect]
     Indication: COLON CANCER
     Dosage: 2 G/M2, UNK
     Route: 042
     Dates: start: 20070830, end: 20071025
  4. SODIUM FUSIDATE [Suspect]
     Indication: COLON CANCER
     Dosage: 500 MG/M2, UNK
     Route: 042
     Dates: start: 20070830, end: 20071025

REACTIONS (4)
  - CHEST DISCOMFORT [None]
  - DYSPNOEA [None]
  - ENDOCARDITIS [None]
  - TACHYCARDIA [None]
